FAERS Safety Report 4539334-9 (Version None)
Quarter: 2004Q4

REPORT INFORMATION
  Report Type: 
  Country: None (occurrence: None)
  Receive Date: 20041222
  Receipt Date: 20041209
  Transmission Date: 20050328
  Serious: Yes (Death)
  Sender: FDA-Public Use
  Company Number: 2004108500

PATIENT
  Age: 58 Year
  Sex: Female

DRUGS (1)
  1. MINIPRESS [Suspect]
     Indication: ILL-DEFINED DISORDER
     Dosage: ORAL
     Route: 048
     Dates: start: 20031201, end: 20031201

REACTIONS (4)
  - BLOOD PRESSURE DECREASED [None]
  - COMPLETED SUICIDE [None]
  - GASTRIC PERFORATION [None]
  - IATROGENIC INJURY [None]
